FAERS Safety Report 5751565-9 (Version None)
Quarter: 2008Q2

REPORT INFORMATION
  Report Type: 
  Country: None (occurrence: None)
  Receive Date: 20080528
  Receipt Date: 20080519
  Transmission Date: 20081010
  Serious: Yes (Other)
  Sender: FDA-Public Use
  Company Number: PHEH2008US04053

PATIENT
  Sex: Female

DRUGS (1)
  1. RECLAST [Suspect]
     Dates: start: 20080325

REACTIONS (5)
  - ARTHRALGIA [None]
  - INTESTINAL OPERATION [None]
  - MUSCULOSKELETAL CHEST PAIN [None]
  - MYALGIA [None]
  - PAIN IN EXTREMITY [None]
